FAERS Safety Report 5088293-1 (Version None)
Quarter: 2006Q3

REPORT INFORMATION
  Report Type: 
  Country: None (occurrence: None)
  Receive Date: 20060821
  Receipt Date: 20060803
  Transmission Date: 20061208
  Serious: Yes (Other)
  Sender: FDA-Public Use
  Company Number: CHPA2006US07608

PATIENT
  Age: 83 Year
  Sex: Female
  Weight: 36.7 kg

DRUGS (1)
  1. EXCEDRINE EXTRA STRENGTH (NCH) (CAFFEINE CITRATE, ACETYLSALICYLIC ACID [Suspect]
     Indication: PATELLA FRACTURE
     Dosage: 2 DF, BID, ORAL
     Route: 048
     Dates: start: 20020101

REACTIONS (1)
  - DRUG ABUSER [None]
